FAERS Safety Report 11700121 (Version 1)
Quarter: 2015Q4

REPORT INFORMATION
  Report Type: Spontaneous
  Country: AR (occurrence: AR)
  Receive Date: 20151105
  Receipt Date: 20151105
  Transmission Date: 20160304
  Serious: Yes (Hospitalization)
  Sender: FDA-Public Use
  Company Number: AR-FRESENIUS KABI-FK201505588

PATIENT
  Age: 60 Year
  Sex: Male

DRUGS (1)
  1. PROPOFOL 2% MCT FRESENIUS [Suspect]
     Active Substance: PROPOFOL
     Indication: SEDATIVE THERAPY
     Route: 042

REACTIONS (5)
  - Pyrexia [Recovering/Resolving]
  - Liver disorder [Recovering/Resolving]
  - Hypotension [Recovering/Resolving]
  - Renal disorder [Recovering/Resolving]
  - Chills [Recovering/Resolving]
